FAERS Safety Report 7041116-3 (Version None)
Quarter: 2010Q4

REPORT INFORMATION
  Report Type: 
  Country: None (occurrence: None)
  Receive Date: 20101013
  Receipt Date: 20100930
  Transmission Date: 20110411
  Serious: Yes (Other)
  Sender: FDA-Public Use
  Company Number: FR-JNJFOC-20101002604

PATIENT
  Sex: Male

DRUGS (5)
  1. TRAMADOL HCL [Suspect]
     Indication: PAIN
     Route: 048
  2. VFEND [Suspect]
     Indication: PRODUCT USED FOR UNKNOWN INDICATION
     Route: 065
  3. LYRICA [Suspect]
     Indication: POST-TRAUMATIC STRESS DISORDER
     Route: 048
  4. CYMBALTA [Suspect]
     Indication: POST-TRAUMATIC STRESS DISORDER
     Route: 048
  5. GLUCOPHAGE [Concomitant]
     Route: 065

REACTIONS (1)
  - BLOOD ALKALINE PHOSPHATASE INCREASED [None]
